FAERS Safety Report 6730596-6 (Version None)
Quarter: 2010Q2

REPORT INFORMATION
  Report Type: 
  Country: None (occurrence: None)
  Receive Date: 20100514
  Receipt Date: 20100504
  Transmission Date: 20101027
  Serious: Yes (Hospitalization)
  Sender: FDA-Public Use
  Company Number: 583987

PATIENT
  Age: 74 Year
  Sex: Female

DRUGS (3)
  1. OXALIPLATIN [Suspect]
     Indication: COLON CANCER STAGE III
  2. FLUOROURACIL [Suspect]
     Indication: COLON CANCER STAGE III
  3. LEUCOVORIN CALCIUM [Suspect]
     Indication: COLON CANCER STAGE III

REACTIONS (1)
  - ORGANISING PNEUMONIA [None]
